FAERS Safety Report 7480467-5 (Version None)
Quarter: 2011Q2

REPORT INFORMATION
  Report Type: 
  Country: None (occurrence: None)
  Receive Date: 20110512
  Receipt Date: 20110512
  Transmission Date: 20111010
  Serious: Yes (Other)
  Sender: FDA-Public Use
  Company Number: None

PATIENT
  Sex: Female
  Weight: 71 kg

DRUGS (1)
  1. TEFLARO [Suspect]
     Indication: CELLULITIS
     Dosage: 600 MG Q 12 HOURS IV
     Route: 042
     Dates: start: 20110509, end: 20110511

REACTIONS (1)
  - RASH PRURITIC [None]
